FAERS Safety Report 15885048 (Version 3)
Quarter: 2020Q2

REPORT INFORMATION
  Report Type: Report from Study
  Country: US (occurrence: US)
  Receive Date: 20190129
  Receipt Date: 20200408
  Transmission Date: 20200713
  Serious: Yes (Hospitalization)
  Sender: FDA-Public Use
  Company Number: US-NOVOPROD-636274

PATIENT
  Age: 56 Year
  Sex: Female
  Weight: 72 kg

DRUGS (2)
  1. SEMAGLUTIDE B 1.0 MG/ML [Suspect]
     Active Substance: SEMAGLUTIDE
     Indication: NON-ALCOHOLIC STEATOHEPATITIS
     Dosage: 0.3 MG, QD
     Route: 058
     Dates: start: 20180326, end: 20181018
  2. SEMAGLUTIDE B 1.0 MG/ML [Suspect]
     Active Substance: SEMAGLUTIDE
     Dosage: 0.3 MG, QD
     Route: 058
     Dates: start: 20181022

REACTIONS (1)
  - Cholecystitis [Recovered/Resolved]

NARRATIVE: CASE EVENT DATE: 20181018
